FAERS Safety Report 5216746-1 (Version None)
Quarter: 2007Q1

REPORT INFORMATION
  Report Type: 
  Country: None (occurrence: None)
  Receive Date: 20070118
  Receipt Date: 20070105
  Transmission Date: 20070707
  Serious: Yes (Hospitalization, Other)
  Sender: FDA-Public Use
  Company Number: 07-000044

PATIENT
  Age: 86 Year
  Sex: Female

DRUGS (1)
  1. PYRIDIUM (PHENAZOPYRIDINE HYDROCHLORIDE) TABLET, 100 MG [Suspect]
     Indication: DYSURIA
     Dosage: 200 MG, TID ONE MONTH, ORAL
     Route: 048

REACTIONS (3)
  - CARDIAC FAILURE [None]
  - HAEMOLYTIC ANAEMIA [None]
  - METHAEMOGLOBINAEMIA [None]
